FAERS Safety Report 9159875 (Version 1)
Quarter: 2013Q1

REPORT INFORMATION
  Report Type: Spontaneous
  Country: US (occurrence: None)
  Receive Date: 20130219
  Receipt Date: 20130219
  Transmission Date: 20140127
  Serious: Yes (Disabling, Other)
  Sender: FDA-Public Use
  Company Number: ACO_34264_2013

PATIENT
  Sex: Male

DRUGS (8)
  1. AMPYRA (DALFAMPRIDINE) TABLET, 10MG [Suspect]
     Indication: PRODUCT USED FOR UNKNOWN INDICATION
     Dates: start: 20110531
  2. KLONOPIN (CLONAZEPAM) TABLET [Concomitant]
  3. LYRICA (PREGABALIN) CAPSULE [Concomitant]
  4. VICODIN ES (HYDROCODONE BITARTRATE, PARACETAMOL) TABLET [Concomitant]
  5. OMEPRAZOLE (OMEPRAZOLE) TABLET [Concomitant]
  6. METHYLPHENIDATE (METHYLPHENIDATE HYDROCHLORIDE) TABLET [Concomitant]
  7. ZANAFLEX (TIZANIDINE HYDROCHLORIDE) TABLET [Concomitant]
  8. ULTRAM (TRAMADOL HYDROCHLORIDE) TABLET [Concomitant]

REACTIONS (4)
  - Abasia [None]
  - Wheelchair user [None]
  - Depression [None]
  - Decreased interest [None]
